FAERS Safety Report 4293206-6 (Version None)
Quarter: 2004Q1

REPORT INFORMATION
  Report Type: 
  Country: None (occurrence: None)
  Receive Date: 20040210
  Receipt Date: 20040129
  Transmission Date: 20041129
  Serious: Yes (Other)
  Sender: FDA-Public Use
  Company Number: 2004006538

PATIENT
  Age: 59 Year
  Sex: Male
  Weight: 53.5244 kg

DRUGS (15)
  1. LIPITOR [Suspect]
     Indication: BLOOD CHOLESTEROL INCREASED
     Dosage: 20 MG (DAILY), ORAL
     Route: 048
     Dates: start: 20030101, end: 20030915
  2. VERAPAMIL [Concomitant]
  3. RANITIDINE [Concomitant]
  4. VALPROIC ACID [Concomitant]
  5. METHOCARBAMOL [Concomitant]
  6. PARACETAMOL (PARACETAMOL) [Concomitant]
  7. CHLORDIAZEPOXIDE [Concomitant]
  8. GLUCOSAMINE W/CHONDROITIN SULFATES (ASCORBIC ACID, MANGANESE, CONDROIT [Concomitant]
  9. TOCOPHEROL CONCENTRATE CAP [Concomitant]
  10. ZINC (ZINC) [Concomitant]
  11. NAPROXEN SODIUM [Concomitant]
  12. MULTIVITAMIN [Concomitant]
  13. DIHYDROXYALUMINUM SODIUM CARBONATE (DIHYDROXYALUMINUM SODIUM CARBONATE [Concomitant]
  14. CLOTRIMAZOLE (CLOTRIMAZOLE) [Concomitant]
  15. TRIAMCINOLONE [Concomitant]

REACTIONS (11)
  - ABNORMAL DREAMS [None]
  - ARTHRITIS [None]
  - BLOOD CREATINE PHOSPHOKINASE INCREASED [None]
  - BLOOD CREATINE PHOSPHOKINASE MB INCREASED [None]
  - DEPRESSION [None]
  - MUSCLE CRAMP [None]
  - MUSCULOSKELETAL STIFFNESS [None]
  - MYALGIA [None]
  - OEDEMA PERIPHERAL [None]
  - POLLAKIURIA [None]
  - PYREXIA [None]
